FAERS Safety Report 16696168 (Version 3)
Quarter: 2019Q4

REPORT INFORMATION
  Report Type: Spontaneous
  Country: DE (occurrence: DE)
  Receive Date: 20190813
  Receipt Date: 20191024
  Transmission Date: 20200122
  Serious: Yes (Hospitalization, Other)
  Sender: FDA-Public Use
  Company Number: DE-ACCORD-150786

PATIENT
  Age: 12 Year
  Sex: Male
  Weight: 42 kg

DRUGS (12)
  1. CLOBAZAM. [Interacting]
     Active Substance: CLOBAZAM
     Indication: LENNOX-GASTAUT SYNDROME
     Dosage: UNK
  2. CLOBAZAM. [Interacting]
     Active Substance: CLOBAZAM
     Indication: EPILEPSY
  3. CLOBAZAM. [Suspect]
     Active Substance: CLOBAZAM
     Indication: EPILEPSY
  4. TALOXA [Interacting]
     Active Substance: FELBAMATE
     Indication: LENNOX-GASTAUT SYNDROME
     Dosage: LAST ADMINISTRATION: FEB-2017, FORMULATION REPORTED AS MAXIMUM 2000 MG
     Route: 048
     Dates: start: 2017
  5. PHENOBARBITAL. [Interacting]
     Active Substance: PHENOBARBITAL
     Indication: EPILEPSY
  6. TALOXA [Interacting]
     Active Substance: FELBAMATE
     Indication: EPILEPSY
     Dosage: UNK
     Route: 048
  7. FELBAMATE. [Interacting]
     Active Substance: FELBAMATE
     Indication: EPILEPSY
  8. PREGABALIN. [Interacting]
     Active Substance: PREGABALIN
     Indication: EPILEPSY
  9. PHENOBARBITAL. [Interacting]
     Active Substance: PHENOBARBITAL
     Indication: LENNOX-GASTAUT SYNDROME
  10. ETHOSUXIMIDE. [Interacting]
     Active Substance: ETHOSUXIMIDE
     Indication: LENNOX-GASTAUT SYNDROME
     Dosage: UNK
  11. ETHOSUXIMIDE. [Interacting]
     Active Substance: ETHOSUXIMIDE
     Indication: EPILEPSY
     Dosage: UNK
  12. PREGABALIN. [Interacting]
     Active Substance: PREGABALIN
     Indication: LENNOX-GASTAUT SYNDROME

REACTIONS (8)
  - Withdrawal syndrome [Unknown]
  - Product prescribing error [Unknown]
  - Drug interaction [Unknown]
  - Petit mal epilepsy [Unknown]
  - Benzodiazepine drug level decreased [Unknown]
  - Depressed level of consciousness [Unknown]
  - Condition aggravated [Unknown]
  - Generalised tonic-clonic seizure [Unknown]

NARRATIVE: CASE EVENT DATE: 2017
